FAERS Safety Report 5242209-3 (Version None)
Quarter: 2007Q1

REPORT INFORMATION
  Report Type: 
  Country: None (occurrence: None)
  Receive Date: 20070213
  Receipt Date: 20070130
  Transmission Date: 20070707
  Serious: Yes (Hospitalization)
  Sender: FDA-Public Use
  Company Number: DILJP-07-0111

PATIENT
  Age: 70 Year
  Sex: Female
  Weight: 39 kg

DRUGS (6)
  1. PROPOFOL [Suspect]
     Indication: HYPERTENSION
     Dosage: TREATMENT DURATION OF 8 HOURS, INTRAVENOUS
     Route: 042
  2. PROPOFOL [Suspect]
     Indication: INDUCTION OF ANAESTHESIA
     Dosage: TREATMENT DURATION OF 8 HOURS, INTRAVENOUS
     Route: 042
  3. PROPOFOL [Suspect]
     Indication: MAINTENANCE OF ANAESTHESIA
     Dosage: TREATMENT DURATION OF 8 HOURS, INTRAVENOUS
     Route: 042
  4. ANTI-HYPERTENSIVES (ANTIHYPERTENSIVES) [Concomitant]
  5. MIDAZOLAM HCL [Concomitant]
  6. FENTANYL CITRATE [Concomitant]

REACTIONS (2)
  - SWELLING FACE [None]
  - TONGUE OEDEMA [None]
